FAERS Safety Report 25039560 (Version 1)
Quarter: 2025Q1

REPORT INFORMATION
  Report Type: Other
  Country: CA (occurrence: CA)
  Receive Date: 20250305
  Receipt Date: 20250305
  Transmission Date: 20250409
  Serious: Yes (Hospitalization, Other)
  Sender: Atnahs Healthcare
  Company Number: CA-ATNAHS-ATNAHS20250100696

PATIENT
  Age: 11 Year
  Sex: Male

DRUGS (66)
  1. KETOROLAC [Suspect]
     Active Substance: KETOROLAC TROMETHAMINE
     Indication: Pain
  2. PHENOBARBITAL [Suspect]
     Active Substance: PHENOBARBITAL
     Indication: Product used for unknown indication
  3. PHENOBARBITAL [Suspect]
     Active Substance: PHENOBARBITAL
  4. CLOBAZAM [Suspect]
     Active Substance: CLOBAZAM
     Indication: Back pain
  5. CLOBAZAM [Suspect]
     Active Substance: CLOBAZAM
  6. BACLOFEN [Suspect]
     Active Substance: BACLOFEN
     Indication: Product used for unknown indication
  7. BACLOFEN [Suspect]
     Active Substance: BACLOFEN
  8. BISACODYL [Suspect]
     Active Substance: BISACODYL
     Indication: Product used for unknown indication
     Dosage: 5 MILLIGRAM, 1X/DAY
  9. CELECOXIB [Suspect]
     Active Substance: CELECOXIB
     Indication: Pain management
     Dosage: 100 MILLIGRAM, 2X/DAY
  10. CELECOXIB [Suspect]
     Active Substance: CELECOXIB
     Indication: Back pain
  11. CHOLECALCIFEROL [Suspect]
     Active Substance: CHOLECALCIFEROL
     Indication: Vitamin supplementation
     Dosage: 2000 IU (INTERNATIONAL UNIT), 1X/DAY
  12. CLONIDINE [Suspect]
     Active Substance: CLONIDINE
     Indication: Product used for unknown indication
     Dosage: 0.1 MILLIGRAM, 1X/DAY
  13. CLONIDINE [Suspect]
     Active Substance: CLONIDINE
     Dosage: 0.05 MILLIGRAM, 1X/DAY
  14. DIMENHYDRINATE [Suspect]
     Active Substance: DIMENHYDRINATE
     Indication: Pruritus
     Dosage: 12.5 MILLIGRAM, 4X/DAY
  15. DIMENHYDRINATE [Suspect]
     Active Substance: DIMENHYDRINATE
     Indication: Constipation
     Dosage: 25 MILLIGRAM, 1X/DAY
  16. DIMENHYDRINATE [Suspect]
     Active Substance: DIMENHYDRINATE
     Dosage: 20 MILLIGRAM, 1X/DAY
  17. DIPHENHYDRAMINE [Suspect]
     Active Substance: DIPHENHYDRAMINE
     Indication: Pruritus
  18. DOCONEXENT [Suspect]
     Active Substance: DOCONEXENT
     Indication: Product used for unknown indication
  19. DULCOLAX BALANCE [Suspect]
     Active Substance: POLYETHYLENE GLYCOL 3350
     Indication: Product used for unknown indication
     Dosage: 5 MILLIGRAM, 1X/DAY
  20. ELIGARD [Suspect]
     Active Substance: LEUPROLIDE ACETATE
     Indication: Precocious puberty
  21. ELIGARD [Suspect]
     Active Substance: LEUPROLIDE ACETATE
  22. FLUOXETINE [Suspect]
     Active Substance: FLUOXETINE HYDROCHLORIDE
     Indication: Product used for unknown indication
     Dosage: 20 MILLIGRAM, 1X/DAY
  23. FLUTICASONE [Suspect]
     Active Substance: FLUTICASONE
     Indication: Product used for unknown indication
     Dosage: 250 MICROGRAM, 1X/DAY
  24. FLUTICASONE [Suspect]
     Active Substance: FLUTICASONE
     Dosage: UNK, 1X/DAY
  25. FLUTICASONE [Suspect]
     Active Substance: FLUTICASONE
     Dosage: 2 DOSAGE FORM, 1X/DAY
  26. GABAPENTIN [Suspect]
     Active Substance: GABAPENTIN
     Indication: Pain management
     Dosage: 600 MILLIGRAM, 2X/DAY
  27. GABAPENTIN [Suspect]
     Active Substance: GABAPENTIN
     Indication: Back pain
  28. GABAPENTIN [Suspect]
     Active Substance: GABAPENTIN
  29. HYDROMORPHONE [Suspect]
     Active Substance: HYDROMORPHONE
     Indication: Pain management
  30. HYDROMORPHONE [Suspect]
     Active Substance: HYDROMORPHONE
     Indication: Back pain
  31. HYDROMORPHONE HYDROCHLORIDE [Suspect]
     Active Substance: HYDROMORPHONE HYDROCHLORIDE
     Indication: Pain management
  32. HYDROMORPHONE HYDROCHLORIDE [Suspect]
     Active Substance: HYDROMORPHONE HYDROCHLORIDE
     Indication: Back pain
  33. HYDROXYCHLOROQUINE [Suspect]
     Active Substance: HYDROXYCHLOROQUINE
     Indication: Product used for unknown indication
     Dosage: 400 MILLIGRAM, 1X/DAY
  34. LEUPROLIDE ACETATE [Suspect]
     Active Substance: LEUPROLIDE ACETATE
     Indication: Product used for unknown indication
     Dosage: 7.5 MILLIGRAM, 1X/DAY
  35. LEUPROLIDE ACETATE [Suspect]
     Active Substance: LEUPROLIDE ACETATE
     Indication: Product used for unknown indication
     Dosage: 0.25 MILLIGRAM, 1X/DAY
  36. LORAZEPAM [Suspect]
     Active Substance: LORAZEPAM
     Indication: Seizure
     Dosage: 2 MILLIGRAM, 1X/DAY
  37. LORAZEPAM [Suspect]
     Active Substance: LORAZEPAM
     Indication: Pain management
     Dosage: 0.5 MILLIGRAM, 1X/DAY
  38. LORAZEPAM [Suspect]
     Active Substance: LORAZEPAM
     Indication: Muscle spasms
  39. LORAZEPAM [Suspect]
     Active Substance: LORAZEPAM
     Indication: Back pain
  40. POLYETHYLENE GLYCOLS [Suspect]
     Active Substance: POLYETHYLENE GLYCOLS
     Indication: Product used for unknown indication
     Dosage: 30 MILLIGRAM, 2X/DAY
  41. POLYETHYLENE GLYCOL 3350\POTASSIUM CHLORIDE\SODIUM BICARBONATE\SODIUM [Concomitant]
     Active Substance: POLYETHYLENE GLYCOL 3350\POTASSIUM CHLORIDE\SODIUM BICARBONATE\SODIUM CHLORIDE
     Indication: Product used for unknown indication
  42. POLYETHYLENE GLYCOL 3350 [Suspect]
     Active Substance: POLYETHYLENE GLYCOL 3350
     Indication: Product used for unknown indication
     Dosage: 30 MILLIGRAM, 2X/DAY
  43. MELATONIN [Suspect]
     Active Substance: MELATONIN
     Indication: Sleep disorder
     Dosage: 10 MILLIGRAM, 1X/DAY
  44. METHADONE [Suspect]
     Active Substance: METHADONE HYDROCHLORIDE
     Indication: Sleep disorder
     Dosage: 0.375 MILLIGRAM, 1X/DAY
  45. METHADONE [Suspect]
     Active Substance: METHADONE HYDROCHLORIDE
     Indication: Back pain
     Dosage: 10 MILLIGRAM, 1X/DAY
  46. METHADONE [Suspect]
     Active Substance: METHADONE HYDROCHLORIDE
  47. METHOCARBAMOL [Suspect]
     Active Substance: METHOCARBAMOL
     Indication: Back pain
     Dosage: 1 DOSAGE FORM, 2X/DAY
  48. METHOCARBAMOL [Suspect]
     Active Substance: METHOCARBAMOL
  49. OMEGA 3 [Suspect]
     Active Substance: CAPSAICIN
     Indication: Product used for unknown indication
     Dosage: 200 MILLIGRAM, 1X/DAY
  50. OMEGA 3 [Suspect]
     Active Substance: CAPSAICIN
     Dosage: 1 DOSAGE FORM, 1X/DAY
  51. OMEGA 3 [Suspect]
     Active Substance: CAPSAICIN
     Dosage: 400 MILLIGRAM, 1X/DAY
  52. RANITIDINE [Suspect]
     Active Substance: RANITIDINE
     Indication: Product used for unknown indication
     Dosage: 150 MILLIGRAM, 1X/DAY
  53. ROBAXACET [Suspect]
     Active Substance: ACETAMINOPHEN\METHOCARBAMOL
     Indication: Back pain
     Dosage: 900 MILLIGRAM, 1X/DAY
  54. ROBAXACET [Suspect]
     Active Substance: ACETAMINOPHEN\METHOCARBAMOL
     Dosage: 400 MILLIGRAM, 1X/DAY
  55. ROBAXISAL [Suspect]
     Active Substance: ASPIRIN\METHOCARBAMOL
     Indication: Product used for unknown indication
     Dosage: 400 MILLIGRAM, 1X/DAY
  56. ROBAXISAL [Suspect]
     Active Substance: ASPIRIN\METHOCARBAMOL
     Dosage: 500 MILLIGRAM, 1X/DAY
  57. ALBUTEROL [Suspect]
     Active Substance: ALBUTEROL
     Indication: Product used for unknown indication
  58. ALBUTEROL [Suspect]
     Active Substance: ALBUTEROL
  59. ARIPIPRAZOLE [Suspect]
     Active Substance: ARIPIPRAZOLE
     Indication: Schizophrenia
     Dosage: 5 MILLIGRAM, 1X/DAY
  60. ARIPIPRAZOLE [Suspect]
     Active Substance: ARIPIPRAZOLE
  61. ARIPIPRAZOLE [Suspect]
     Active Substance: ARIPIPRAZOLE
     Dosage: 2 MILLIGRAM, 1X/DAY
  62. MONTELUKAST SODIUM [Suspect]
     Active Substance: MONTELUKAST SODIUM
     Indication: Product used for unknown indication
     Dosage: 10 MILLIGRAM, 1X/DAY
  63. PANTOPRAZOLE SODIUM [Suspect]
     Active Substance: PANTOPRAZOLE SODIUM
     Indication: Product used for unknown indication
     Dosage: 40 MILLIGRAM, 1X/DAY
  64. TYLENOL EXTRA STRENGTH [Suspect]
     Active Substance: ACETAMINOPHEN
     Indication: Back pain
     Dosage: 400 MILLIGRAM, 2X/DAY
  65. VITAMIN C [Suspect]
     Active Substance: ASCORBIC ACID
     Indication: Product used for unknown indication
     Dosage: 1500 MILLIGRAM, 1X/DAY
  66. VITAMIN D3 [Suspect]
     Active Substance: CHOLECALCIFEROL
     Indication: Vitamin supplementation
     Dosage: 200 IU (INTERNATIONAL UNIT), 1X/DAY

REACTIONS (16)
  - Epidural lipomatosis [Recovered/Resolved]
  - Juvenile idiopathic arthritis [Recovered/Resolved]
  - Obesity [Recovered/Resolved]
  - Respiratory depression [Recovered/Resolved]
  - Tenderness [Recovered/Resolved]
  - Drug dependence [Recovered/Resolved]
  - Child abuse [Recovered/Resolved]
  - Drug abuse [Recovered/Resolved]
  - Drug ineffective [Recovered/Resolved]
  - Inappropriate schedule of product administration [Recovered/Resolved]
  - Intentional product misuse [Recovered/Resolved]
  - Off label use [Recovered/Resolved]
  - Product prescribing error [Recovered/Resolved]
  - Product use in unapproved indication [Recovered/Resolved]
  - Product use issue [Recovered/Resolved]
  - Victim of child abuse [Recovered/Resolved]
